FAERS Safety Report 9468660 (Version 1)
Quarter: 2013Q3

REPORT INFORMATION
  Report Type: Spontaneous
  Country: US (occurrence: None)
  Receive Date: 20130816
  Receipt Date: 20130816
  Transmission Date: 20140515
  Serious: Yes (Hospitalization)
  Sender: FDA-Public Use
  Company Number: SYM-2013-08602

PATIENT
  Age: 83 Year
  Sex: Female

DRUGS (9)
  1. TIMOPTOL LP [Suspect]
     Indication: PRODUCT USED FOR UNKNOWN INDICATION
     Route: 047
  2. OLMETEC (OLMESARTAN MEDOXOMIL) (20 MILLIGRAM, TABLET) (OLMESARTAN MEDOXOMIL) [Suspect]
     Indication: PRODUCT USED FOR UNKNOWN INDICATION
     Route: 048
  3. BOLINAN (POLYVIDONE) (2 GAM, TABLET) (POLYVIDONE) [Suspect]
     Indication: PRODUCT USED FOR UNKNOWN INDICATION
     Route: 048
     Dates: start: 20130702
  4. SANGUINARIA CANADESIS 7CH (OTHER THERAPEUTIC PRODUCTS) (NULL) [Concomitant]
  5. BRYONIA 7 CH (OTHER THERAPEUTIC PRODUCTS) (NULL) [Concomitant]
  6. RHUS TOXICODENDRON 9 CH (OTHER THERAPEUTIC PRODUCTS) (NULL) [Concomitant]
  7. ARGENTUM NITRICUM 9 CH (OTHER THERAPEUTIC PRODUCTS) (NULL) [Concomitant]
  8. ARSENICUM ALBUM 15 CH (OTHER THERAPEUTIC PRODUCTS) (NULL) [Concomitant]
  9. LYCPODIUM 15 CH (OTHER THERAPEUTIC PRODUCTS) (NULL) [Concomitant]

REACTIONS (4)
  - Malaise [None]
  - Abdominal pain upper [None]
  - Nausea [None]
  - Hyponatraemia [None]
